FAERS Safety Report 4392744-5 (Version None)
Quarter: 2004Q3

REPORT INFORMATION
  Report Type: 
  Country: None (occurrence: None)
  Receive Date: 20040706
  Receipt Date: 20040621
  Transmission Date: 20050211
  Serious: Yes (Disabling)
  Sender: FDA-Public Use
  Company Number: 2004GB01485

PATIENT
  Age: 46 Year
  Sex: Male
  Weight: 64 kg

DRUGS (2)
  1. CRESTOR [Suspect]
     Dosage: 20 MG DAILY PO
     Route: 048
  2. COZAAR [Concomitant]

REACTIONS (3)
  - ABDOMINAL PAIN UPPER [None]
  - MUSCLE SPASMS [None]
  - MYALGIA [None]
